FAERS Safety Report 15254891 (Version 1)
Quarter: 2018Q3

REPORT INFORMATION
  Report Type: Spontaneous
  Country: US (occurrence: US)
  Receive Date: 20180717
  Receipt Date: 20180717
  Transmission Date: 20181010
  Serious: Yes (Hospitalization)
  Sender: FDA-Public Use
  Company Number: None

PATIENT
  Age: 59 Year
  Sex: Male

DRUGS (14)
  1. NYSTATIN. [Concomitant]
     Active Substance: NYSTATIN
  2. POT CHLORIDE [Concomitant]
     Active Substance: POTASSIUM CHLORIDE
  3. LISINOPRIL. [Concomitant]
     Active Substance: LISINOPRIL
  4. TAMSULOSIN [Concomitant]
     Active Substance: TAMSULOSIN
  5. CALC ACETATE [Concomitant]
  6. CARVEDILOL. [Concomitant]
     Active Substance: CARVEDILOL
  7. ELIQUIS [Concomitant]
     Active Substance: APIXABAN
  8. HCTZ [Concomitant]
     Active Substance: HYDROCHLOROTHIAZIDE
  9. ATORVASTATIN [Concomitant]
     Active Substance: ATORVASTATIN
  10. ZYTIGA [Suspect]
     Active Substance: ABIRATERONE ACETATE
     Indication: PROSTATE CANCER
     Route: 048
     Dates: start: 20180413
  11. BUPROPION. [Concomitant]
     Active Substance: BUPROPION
  12. PREDNISONE. [Concomitant]
     Active Substance: PREDNISONE
  13. SPIRONOLACT [Concomitant]
     Active Substance: SPIRONOLACTONE
  14. MORPHINE SUL [Concomitant]
     Active Substance: MORPHINE SULFATE

REACTIONS (1)
  - Hospitalisation [None]
